FAERS Safety Report 14568393 (Version 1)
Quarter: 2018Q1

REPORT INFORMATION
  Report Type: Spontaneous
  Country: US (occurrence: US)
  Receive Date: 20180223
  Receipt Date: 20180223
  Transmission Date: 20180509
  Serious: Yes (Other)
  Sender: FDA-Public Use
  Company Number: US-PFIZER INC-2018068175

PATIENT
  Age: 60 Year
  Sex: Male

DRUGS (4)
  1. DOXORUBICIN HCL [Concomitant]
     Active Substance: DOXORUBICIN HYDROCHLORIDE
     Indication: PLASMA CELL MYELOMA
     Dosage: 25 MG, UNK
     Dates: start: 198502
  2. PREDNISONE. [Concomitant]
     Active Substance: PREDNISONE
     Indication: PLASMA CELL MYELOMA
     Dosage: UNK, CYCLIC (15 CYCLE)
     Dates: start: 198412
  3. PREDNISONE. [Concomitant]
     Active Substance: PREDNISONE
     Dosage: 80 MG, DAILY (FOR FOUR DAYS)
     Dates: start: 198502
  4. VINCRISTINE SULFATE. [Suspect]
     Active Substance: VINCRISTINE SULFATE
     Indication: PLASMA CELL MYELOMA
     Dosage: 2 MG, SINGLE (READY-TO-USE SOLUTION)
     Dates: start: 198502, end: 198502

REACTIONS (1)
  - Neuropathy peripheral [Recovering/Resolving]
